FAERS Safety Report 18434850 (Version 1)
Quarter: 2020Q4

REPORT INFORMATION
  Report Type: Spontaneous
  Country: CH (occurrence: CH)
  Receive Date: 20201028
  Receipt Date: 20201028
  Transmission Date: 20210114
  Serious: Yes (Other)
  Sender: FDA-Public Use
  Company Number: CH-LUPIN PHARMACEUTICALS INC.-2020-07867

PATIENT

DRUGS (5)
  1. HYDROXYCHLOROQUINE [Suspect]
     Active Substance: HYDROXYCHLOROQUINE
     Indication: COVID-19 PNEUMONIA
     Dosage: UNK(THE PATIENT RECEIVED HYDROXYCHLOROQUINE AS PER LOCAL TREATMENT GUIDELINE)
     Route: 065
     Dates: start: 202004
  2. TOCILIZUMAB. [Concomitant]
     Active Substance: TOCILIZUMAB
     Indication: COVID-19 PNEUMONIA
     Dosage: UNK, TOCILIZUMAB WAS ADMINISTERED 12H AFTER THE START OF CONESTAT ALFA
     Route: 065
     Dates: start: 202004
  3. LOPINAVIR/RITONAVIR [Suspect]
     Active Substance: LOPINAVIR\RITONAVIR
     Indication: COVID-19 PNEUMONIA
     Dosage: UNK (THE PATIENT RECEIVED LOPINAVIR/RITONAVIR AS PER LOCAL TREATMENT GUIDELINE)
     Route: 065
     Dates: start: 202004
  4. RUCONEST [Concomitant]
     Active Substance: HUMAN C1-ESTERASE INHIBITOR
     Dosage: 4200 INTERNATIONAL UNIT, 3 ADDITIONAL DOSES OF 4200 IU IN 12-H INTERVALS
     Route: 065
  5. RUCONEST [Concomitant]
     Active Substance: HUMAN C1-ESTERASE INHIBITOR
     Indication: COVID-19 PNEUMONIA
     Dosage: 8400 INTERNATIONAL UNIT, ADMINISTERED ON DAY 7 AFTER ADMISSION
     Route: 065
     Dates: start: 202004

REACTIONS (1)
  - Off label use [Unknown]

NARRATIVE: CASE EVENT DATE: 202004
